FAERS Safety Report 4485257-3 (Version None)
Quarter: 2004Q4

REPORT INFORMATION
  Report Type: 
  Country: None (occurrence: None)
  Receive Date: 20041021
  Receipt Date: 20041021
  Transmission Date: 20050328
  Serious: Yes (Hospitalization)
  Sender: FDA-Public Use
  Company Number: None

PATIENT
  Sex: Female
  Weight: 105.2345 kg

DRUGS (2)
  1. CPT-11   40 MG AND 100 MG   PHARMACIA CORPORATION [Suspect]
     Indication: GLIOBLASTOMA MULTIFORME
     Dosage: 400 MG/M^2   ONCE WEEKLY   INTRAVENOU
     Route: 042
     Dates: start: 20040927, end: 20041004
  2. RADIATION [Suspect]
     Indication: GLIOBLASTOMA MULTIFORME
     Dosage: NA   DAILY
     Dates: start: 20040927, end: 20041018

REACTIONS (5)
  - ABDOMINAL PAIN [None]
  - DIARRHOEA [None]
  - FATIGUE [None]
  - NAUSEA [None]
  - VOMITING [None]
